FAERS Safety Report 10915616 (Version 1)
Quarter: 2015Q1

REPORT INFORMATION
  Report Type: Spontaneous
  Country: US (occurrence: US)
  Receive Date: 20150316
  Receipt Date: 20150316
  Transmission Date: 20150721
  Serious: No
  Sender: FDA-Public Use
  Company Number: US-PFIZER INC-2015092012

PATIENT
  Sex: Male
  Weight: 177 kg

DRUGS (1)
  1. ZIPRASIDONE HCL [Suspect]
     Active Substance: ZIPRASIDONE HYDROCHLORIDE
     Dosage: 60 MG IN THE MORNING AND 160 MG AT NIGHT, 2X/DAY

REACTIONS (1)
  - Drug ineffective [Unknown]
